FAERS Safety Report 22191723 (Version 1)
Quarter: 2023Q2

REPORT INFORMATION
  Report Type: Spontaneous
  Country: US (occurrence: US)
  Receive Date: 20230410
  Receipt Date: 20230410
  Transmission Date: 20230721
  Serious: Yes (Other)
  Sender: FDA-Public Use
  Company Number: US-Hikma Pharmaceuticals USA Inc.-US-H14001-23-00988

PATIENT
  Age: 14 Year
  Sex: Female

DRUGS (2)
  1. CYCLOPHOSPHAMIDE [Suspect]
     Active Substance: CYCLOPHOSPHAMIDE
     Indication: Bone marrow conditioning regimen
     Dosage: UNKONWN
     Route: 065
  2. FLUDARABINE [Suspect]
     Active Substance: FLUDARABINE PHOSPHATE
     Indication: Bone marrow conditioning regimen
     Dosage: UNKONWN
     Route: 065

REACTIONS (5)
  - Intermenstrual bleeding [Unknown]
  - Nausea [Recovering/Resolving]
  - Mucosal inflammation [Recovering/Resolving]
  - Cystitis haemorrhagic [Unknown]
  - Pneumonia fungal [Unknown]
